FAERS Safety Report 12443699 (Version 2)
Quarter: 2016Q2

REPORT INFORMATION
  Report Type: Spontaneous
  Country: FI (occurrence: FI)
  Receive Date: 20160607
  Receipt Date: 20160616
  Transmission Date: 20160815
  Serious: Yes (Other)
  Sender: FDA-Public Use
  Company Number: FI-TEVA-663880ISR

PATIENT
  Age: 30 Year
  Sex: Male
  Weight: 100 kg

DRUGS (3)
  1. PARACETAMOL [Suspect]
     Active Substance: ACETAMINOPHEN
     Indication: HEADACHE
     Route: 065
  2. IBUPROFEN. [Suspect]
     Active Substance: IBUPROFEN
     Indication: INFLUENZA
     Dosage: 600 MILLIGRAM DAILY;
     Route: 048
  3. ACETYLSALICYLIC ACID+CAFFEINE+ASCORBIC ACID [Suspect]
     Active Substance: ASCORBIC ACID\ASPIRIN\CAFFEINE
     Indication: INFLUENZA
     Dosage: 2 DOSAGE FORMS DAILY;

REACTIONS (3)
  - Sinusitis [Unknown]
  - Retinal detachment [Unknown]
  - Malignant hypertension [Unknown]
